FAERS Safety Report 6695956-0 (Version None)
Quarter: 2010Q2

REPORT INFORMATION
  Report Type: 
  Country: None (occurrence: None)
  Receive Date: 20100422
  Receipt Date: 20100413
  Transmission Date: 20101027
  Serious: Yes (Hospitalization)
  Sender: FDA-Public Use
  Company Number: 2009EU002538

PATIENT
  Age: 56 Year
  Sex: Female

DRUGS (9)
  1. PROGRAF [Suspect]
     Indication: HEART TRANSPLANT
     Dosage: 6 MG, BID, ORAL
     Route: 048
  2. PREDNISONE [Suspect]
  3. PRAVASTATIN SODIUM [Concomitant]
  4. ARANESP [Concomitant]
  5. FUNGIZONE [Concomitant]
  6. OSTRAM (CALCIUM) [Concomitant]
  7. ALLOPURINOL [Concomitant]
  8. CALDINE (LACIDIPINE) [Concomitant]
  9. INEXIUM (ESOMEPRAZOLE SODIUM) [Concomitant]

REACTIONS (6)
  - ABSCESS NECK [None]
  - CANDIDA SEPSIS [None]
  - DRUG INTERACTION [None]
  - ENDOCARDITIS [None]
  - OVERDOSE [None]
  - SPONDYLITIS [None]
